FAERS Safety Report 9993129 (Version 1)
Quarter: 2014Q1

REPORT INFORMATION
  Report Type: Report from Study
  Country: US (occurrence: US)
  Receive Date: 20140310
  Receipt Date: 20140310
  Transmission Date: 20141002
  Serious: No
  Sender: FDA-Public Use
  Company Number: US-ABBVIE-14P-163-1202752-00

PATIENT
  Age: 17 Year
  Sex: Female
  Weight: 54.48 kg

DRUGS (8)
  1. LUPRON DEPOT [Suspect]
     Indication: ENDOMETRIOSIS
     Dates: start: 201312
  2. ALBUTEROL [Concomitant]
     Indication: ASTHMA
  3. ADVAIR [Concomitant]
     Indication: ASTHMA
  4. PROZAC [Concomitant]
     Indication: ANXIETY
  5. PROZAC [Concomitant]
     Indication: DEPRESSION
  6. MELOXICAM [Concomitant]
     Indication: ENDOMETRIOSIS
  7. OXYCODONE / ACETAMINOPHEN [Concomitant]
     Indication: PAIN
  8. ABILIFY [Concomitant]
     Indication: ANXIETY

REACTIONS (4)
  - Cardiac flutter [Recovered/Resolved]
  - Cardiac flutter [Recovered/Resolved]
  - Dyspnoea [Recovered/Resolved]
  - Dyspnoea [Not Recovered/Not Resolved]
